FAERS Safety Report 8352984-7 (Version None)
Quarter: 2012Q2

REPORT INFORMATION
  Report Type: 
  Country: None (occurrence: None)
  Receive Date: 20120511
  Receipt Date: 20120503
  Transmission Date: 20120825
  Serious: Yes (Hospitalization)
  Sender: FDA-Public Use
  Company Number: ES-SANOFI-AVENTIS-2012SA031463

PATIENT
  Age: 68 Year
  Sex: Male

DRUGS (8)
  1. DEXKETOPROFEN [Interacting]
     Indication: PAIN
     Route: 042
     Dates: start: 20111020, end: 20111022
  2. ENOXAPARIN SODIUM [Suspect]
     Indication: ATRIAL FIBRILLATION
     Route: 058
     Dates: start: 20111014, end: 20111024
  3. IMIPENEM [Concomitant]
     Indication: RESPIRATORY TRACT INFECTION
     Route: 042
     Dates: start: 20111013
  4. AMIODARONE HYDROCHLORIDE [Concomitant]
     Indication: ATRIAL FIBRILLATION
     Dates: start: 20111017
  5. CILASTATIN [Concomitant]
     Indication: RESPIRATORY TRACT INFECTION
     Route: 042
     Dates: start: 20111013
  6. LINEZOLID [Concomitant]
     Indication: RESPIRATORY TRACT INFECTION
     Route: 042
     Dates: start: 20111013
  7. ENOXAPARIN SODIUM [Concomitant]
     Route: 058
     Dates: start: 20110930, end: 20111013
  8. ENALAPRIL MALEATE [Concomitant]
     Indication: HYPERTENSION
     Dates: start: 20111018, end: 20111024

REACTIONS (3)
  - ANAEMIA [None]
  - MUSCLE HAEMORRHAGE [None]
  - DRUG INTERACTION [None]
